FAERS Safety Report 21204247 (Version 1)
Quarter: 2022Q3

REPORT INFORMATION
  Report Type: Report from Study
  Country: CA (occurrence: CA)
  Receive Date: 20220812
  Receipt Date: 20220812
  Transmission Date: 20221027
  Serious: Yes (Hospitalization, Other)
  Sender: FDA-Public Use
  Company Number: CA-ABBVIE-22K-028-4498794-00

PATIENT
  Age: 69 Year
  Sex: Male

DRUGS (2)
  1. LUPRON [Suspect]
     Active Substance: LEUPROLIDE ACETATE
     Indication: Prostate cancer
     Route: 030
     Dates: start: 20200330
  2. LUPRON [Suspect]
     Active Substance: LEUPROLIDE ACETATE
     Route: 030

REACTIONS (9)
  - Urinary tract obstruction [Unknown]
  - Dehydration [Unknown]
  - Bladder cancer [Unknown]
  - Metastases to bone [Unknown]
  - Asthenia [Unknown]
  - Dyspnoea [Unknown]
  - Hypersomnia [Unknown]
  - Decreased appetite [Unknown]
  - Fatigue [Unknown]

NARRATIVE: CASE EVENT DATE: 20220701
